FAERS Safety Report 7797672-0 (Version None)
Quarter: 2011Q4

REPORT INFORMATION
  Report Type: 
  Country: None (occurrence: None)
  Receive Date: 20111005
  Receipt Date: 20110920
  Transmission Date: 20120403
  Serious: Yes (Hospitalization, Other)
  Sender: FDA-Public Use
  Company Number: PHHY2011FR83609

PATIENT
  Sex: Male

DRUGS (14)
  1. MYCOPHENOLATE MOFETIL (CELLCEPT) [Suspect]
     Dosage: 750 MG, BID
     Route: 048
     Dates: end: 20110805
  2. AMLODIPINE BESYLATE [Concomitant]
     Dosage: 5 MG, UNK
     Route: 048
  3. NEORAL [Suspect]
     Dosage: 75 MG, BID
     Route: 048
  4. ALLOPURINOL [Concomitant]
     Dosage: UNK UKN, UNK
  5. METFORMIN HCL [Concomitant]
     Dosage: UNK
     Dates: end: 20110805
  6. UVEDOSE [Concomitant]
     Dosage: UNK UKN, UNK
  7. RAMIPRIL [Concomitant]
     Dosage: 2.5 MG, QD
     Route: 048
     Dates: end: 20110805
  8. COLCHIMAX                               /FRA/ [Concomitant]
     Indication: GOUT
     Dosage: UNK UKN, UNK
  9. NEXIUM [Concomitant]
     Dosage: UNK UKN, UNK
  10. PREDNISONE [Suspect]
     Dosage: 5 MG, QD
     Route: 048
  11. VICTOZA [Concomitant]
     Dosage: UNK UKN, UNK
  12. LASIX [Concomitant]
     Dosage: UNK UKN, UNK
  13. IRBESARTAN AND HYDROCHLOROTHIAZIDE [Concomitant]
     Dosage: 300 MG, QD
     Route: 048
  14. ATORVASTATIN CALCIUM [Concomitant]
     Dosage: UNK UKN, UNK

REACTIONS (17)
  - VOMITING [None]
  - ESCHERICHIA BACTERAEMIA [None]
  - ANURIA [None]
  - LACTIC ACIDOSIS [None]
  - DIARRHOEA [None]
  - RENAL FAILURE ACUTE [None]
  - GENERAL PHYSICAL HEALTH DETERIORATION [None]
  - AGITATION [None]
  - DEHYDRATION [None]
  - ENTEROCOLITIS INFECTIOUS [None]
  - COMA [None]
  - MUSCULAR WEAKNESS [None]
  - MYALGIA [None]
  - ABDOMINAL PAIN [None]
  - CONFUSIONAL STATE [None]
  - IMMUNOSUPPRESSANT DRUG LEVEL INCREASED [None]
  - RHABDOMYOLYSIS [None]
